FAERS Safety Report 7400986-7 (Version None)
Quarter: 2011Q2

REPORT INFORMATION
  Report Type: 
  Country: None (occurrence: None)
  Receive Date: 20110407
  Receipt Date: 20110325
  Transmission Date: 20111010
  Serious: Yes (Hospitalization)
  Sender: FDA-Public Use
  Company Number: PHHY2011US25270

PATIENT
  Sex: Female

DRUGS (23)
  1. NEULASTA [Concomitant]
     Dosage: 6 MG
  2. POLYETHYLENE GLYCOL [Concomitant]
     Dosage: 17 G
     Route: 048
  3. GABAPENTIN [Concomitant]
     Dosage: 600 MG, TID
     Route: 048
     Dates: start: 20101130
  4. PENTAMIDINE ISETHIONATE [Concomitant]
     Dosage: 300 MG, UNK
  5. ACYCLOVIR [Concomitant]
     Dosage: 200 MG
     Route: 048
  6. CALCIUM CARBONATE [Concomitant]
     Dosage: 2250 MG
     Route: 048
  7. PULMICORT [Concomitant]
  8. VENTOLIN [Concomitant]
  9. LEXAPRO [Concomitant]
     Dosage: 20 MG
     Route: 048
  10. FLUCONAZOLE [Concomitant]
     Dosage: 150 MG
     Route: 048
  11. HYDROCHLOROTHIAZIDE [Concomitant]
     Dosage: 25 MG
     Route: 048
  12. MAGNESIUM OXIDE [Concomitant]
     Dosage: 800 MG, TID
     Route: 048
  13. OMEPRAZOLE [Concomitant]
     Dosage: 20 MG
     Route: 048
  14. PREDNISONE [Concomitant]
     Dosage: 7.5 MG
  15. SCOPOLAMINE [Concomitant]
     Dosage: 1.5 MG
  16. BUSPIRONE HCL [Concomitant]
     Dosage: 10 MG
     Route: 048
  17. M.V.I. [Concomitant]
     Dosage: 1 DF, UNK
     Route: 048
  18. ONDANSETRON [Concomitant]
     Dosage: 8 MG
  19. FOLIC ACID [Concomitant]
     Dosage: 1 MG
     Route: 048
  20. EXJADE [Suspect]
     Indication: APLASTIC ANAEMIA
     Dosage: 1250 MG, QD
     Route: 048
  21. METHADONE [Concomitant]
     Dosage: 5 MG
     Route: 048
  22. MONTELUKAST [Concomitant]
     Dosage: 10 MG, QHS
     Route: 048
  23. VITAMIN K TAB [Concomitant]
     Dosage: 10 MG
     Route: 048

REACTIONS (2)
  - ABDOMINAL PAIN [None]
  - VAGINAL HAEMORRHAGE [None]
